FAERS Safety Report 4807062-8 (Version None)
Quarter: 2005Q4

REPORT INFORMATION
  Report Type: 
  Country: None (occurrence: None)
  Receive Date: 20051019
  Receipt Date: 20051010
  Transmission Date: 20060501
  Serious: Yes (Life-Threatening, Hospitalization)
  Sender: FDA-Public Use
  Company Number: 2005-10-0291

PATIENT
  Age: 68 Year
  Sex: Male

DRUGS (9)
  1. CELESTONE [Suspect]
     Indication: BRONCHITIS
     Route: 048
     Dates: start: 20050204
  2. ...... [Concomitant]
  3. PREVISCAN [Suspect]
     Dosage: ORAL
     Route: 048
     Dates: end: 20050207
  4. ......................... [Concomitant]
  5. ZOCOR [Suspect]
     Dosage: ORAL
     Route: 048
  6. .......... [Concomitant]
     Route: 048
  7. LASILIX [Concomitant]
  8. CEFUROXIME AXETIL [Concomitant]
  9. MUCOMYST [Concomitant]

REACTIONS (15)
  - ABDOMINAL DISTENSION [None]
  - COLONIC PSEUDO-OBSTRUCTION [None]
  - CONDITION AGGRAVATED [None]
  - DRUG INTERACTION [None]
  - DYSPNOEA [None]
  - FLATULENCE [None]
  - HAEMATOMA [None]
  - HAEMATURIA [None]
  - INTERNATIONAL NORMALISED RATIO INCREASED [None]
  - LEUKOCYTURIA [None]
  - NORMOCHROMIC NORMOCYTIC ANAEMIA [None]
  - OVERDOSE [None]
  - PROTHROMBIN TIME SHORTENED [None]
  - RENAL FAILURE [None]
  - RESPIRATORY FAILURE [None]
